FAERS Safety Report 5612689-X (Version None)
Quarter: 2008Q1

REPORT INFORMATION
  Report Type: 
  Country: None (occurrence: None)
  Receive Date: 20080130
  Receipt Date: 20080124
  Transmission Date: 20080703
  Serious: Yes (Other)
  Sender: FDA-Public Use
  Company Number: 2008002311

PATIENT
  Sex: 0

DRUGS (1)
  1. LISTERINE AGENT COOL BLUE GLACIER MINT (NO ACTIVE INGREDIENT) [Suspect]
     Indication: DENTAL CARE
     Dosage: 10 ML TWICE, ORAL
     Route: 048
     Dates: start: 20080119, end: 20080120

REACTIONS (2)
  - RASH GENERALISED [None]
  - URTICARIA [None]
